FAERS Safety Report 7045555-6 (Version None)
Quarter: 2010Q4

REPORT INFORMATION
  Report Type: 
  Country: None (occurrence: None)
  Receive Date: 20101014
  Receipt Date: 20101006
  Transmission Date: 20110411
  Serious: Yes (Hospitalization)
  Sender: FDA-Public Use
  Company Number: US-GENZYME-RENA-1000851

PATIENT
  Sex: Male

DRUGS (2)
  1. RENVELA [Suspect]
     Indication: HYPERPHOSPHATAEMIA
     Dosage: 4.0 G, TID
     Route: 048
     Dates: start: 20100401, end: 20100901
  2. RENVELA [Suspect]
     Dosage: 4.0 G, TID
     Route: 048

REACTIONS (3)
  - DERMATITIS [None]
  - HYPERPHOSPHATAEMIA [None]
  - LOWER LIMB FRACTURE [None]
